FAERS Safety Report 6049229-X (Version None)
Quarter: 2009Q1

REPORT INFORMATION
  Report Type: 
  Country: None (occurrence: None)
  Receive Date: 20090123
  Receipt Date: 20090108
  Transmission Date: 20090719
  Serious: Yes (Hospitalization, Other)
  Sender: FDA-Public Use
  Company Number: DE-GENENTECH-275620

PATIENT
  Sex: Female

DRUGS (3)
  1. BEVACIZUMAB [Suspect]
     Indication: OVARIAN EPITHELIAL CANCER
     Dosage: 360 MG, UNK
     Route: 042
     Dates: start: 20080908
  2. CARBOPLATIN [Suspect]
     Indication: OVARIAN EPITHELIAL CANCER
     Dosage: 400.7 MG, UNK
     Route: 042
     Dates: start: 20080908
  3. PACLITAXEL [Suspect]
     Indication: OVARIAN EPITHELIAL CANCER
     Dosage: 262.5 MG, UNK
     Route: 042
     Dates: start: 20080908

REACTIONS (2)
  - INFLUENZA [None]
  - PYREXIA [None]
